FAERS Safety Report 6901390-8 (Version None)
Quarter: 2010Q3

REPORT INFORMATION
  Report Type: 
  Country: None (occurrence: None)
  Receive Date: 20100803
  Receipt Date: 20080308
  Transmission Date: 20110219
  Serious: No
  Sender: FDA-Public Use
  Company Number: US-PFIZER INC-2008008853

PATIENT
  Sex: Female
  Weight: 61.23 kg

DRUGS (5)
  1. LYRICA [Suspect]
     Indication: NEUROPATHY PERIPHERAL
     Route: 048
  2. NEXIUM [Concomitant]
  3. CELEBREX [Concomitant]
  4. PREMARIN [Concomitant]
  5. LISINOPRIL [Concomitant]

REACTIONS (1)
  - RASH MACULAR [None]
